FAERS Safety Report 16084851 (Version 1)
Quarter: 2019Q1

REPORT INFORMATION
  Report Type: Spontaneous
  Country: US (occurrence: US)
  Receive Date: 20190318
  Receipt Date: 20190318
  Transmission Date: 20190418
  Serious: No
  Sender: FDA-Public Use
  Company Number: US-AVADEL SPECIALTY PHARMACEUTICALS, LLC-2018AVA00530

PATIENT
  Age: 85 Year
  Sex: Female

DRUGS (10)
  1. NAPROXEN. [Concomitant]
     Active Substance: NAPROXEN
  2. VITAMIN D [Concomitant]
     Active Substance: CHOLECALCIFEROL
  3. SIMVASTATIN. [Concomitant]
     Active Substance: SIMVASTATIN
  4. CITALOPRAM HYDROBROMIDE. [Concomitant]
     Active Substance: CITALOPRAM HYDROBROMIDE
  5. ^ASPIR LOW^ [Concomitant]
  6. TOVIAZ [Concomitant]
     Active Substance: FESOTERODINE FUMARATE
  7. METOPROLOL SUCCINATE. [Concomitant]
     Active Substance: METOPROLOL SUCCINATE
  8. LEVOTHYROXINE SODIUM. [Concomitant]
     Active Substance: LEVOTHYROXINE SODIUM
  9. NOCTIVA [Suspect]
     Active Substance: DESMOPRESSIN ACETATE
     Indication: INCONTINENCE
     Dosage: 0.83 ?G, 1X/DAY APPROXIMATELY 30 MINUTES BEFORE BED
     Route: 045
     Dates: start: 201809, end: 20181205
  10. EVISTA [Concomitant]
     Active Substance: RALOXIFENE HYDROCHLORIDE

REACTIONS (7)
  - Feeling abnormal [Recovered/Resolved]
  - Aphasia [Recovered/Resolved]
  - Sensory disturbance [Recovered/Resolved]
  - Facial pain [Recovered/Resolved]
  - Off label use [Recovered/Resolved]
  - Fear [Recovered/Resolved]
  - Abnormal sensation in eye [Recovered/Resolved]

NARRATIVE: CASE EVENT DATE: 201809
